FAERS Safety Report 16737570 (Version 1)
Quarter: 2019Q3

REPORT INFORMATION
  Report Type: Spontaneous
  Country: RU (occurrence: RU)
  Receive Date: 20190823
  Receipt Date: 20190823
  Transmission Date: 20191005
  Serious: Yes (Other)
  Sender: FDA-Public Use
  Company Number: RU-BAUSCH-BL-2019-024272

PATIENT
  Sex: Male

DRUGS (2)
  1. ALFA NORMIX [Suspect]
     Active Substance: RIFAXIMIN
     Indication: INTENTIONAL PRODUCT USE ISSUE
  2. ALFA NORMIX [Suspect]
     Active Substance: RIFAXIMIN
     Indication: DYSKINESIA
     Route: 048

REACTIONS (6)
  - Asthenia [Recovering/Resolving]
  - Presyncope [Recovering/Resolving]
  - Blood pressure increased [Recovering/Resolving]
  - Heart rate increased [Recovering/Resolving]
  - Dizziness [Recovering/Resolving]
  - Intentional product use issue [Recovered/Resolved]
